FAERS Safety Report 21016099 (Version 2)
Quarter: 2022Q3

REPORT INFORMATION
  Report Type: Spontaneous
  Country: US (occurrence: US)
  Receive Date: 20220628
  Receipt Date: 20220711
  Transmission Date: 20221027
  Serious: No
  Sender: FDA-Public Use
  Company Number: None

PATIENT

DRUGS (1)
  1. DIMETHYL FUMARATE [Suspect]
     Active Substance: DIMETHYL FUMARATE
     Indication: Product used for unknown indication
     Dosage: HALF A DOSE DAILY
     Route: 065

REACTIONS (3)
  - Intentional underdose [Unknown]
  - Treatment noncompliance [Unknown]
  - Drug ineffective [Unknown]
